FAERS Safety Report 4619556-9 (Version None)
Quarter: 2005Q1

REPORT INFORMATION
  Report Type: 
  Country: None (occurrence: None)
  Receive Date: 20050318
  Receipt Date: 20050318
  Transmission Date: 20050727
  Serious: Yes (Hospitalization)
  Sender: FDA-Public Use
  Company Number: None

PATIENT
  Sex: Female
  Weight: 90.7194 kg

DRUGS (3)
  1. MELATONIN [Suspect]
     Indication: SOMNOLENCE
     Dosage: PO [2 HOURS PRIOR TO ADDMISSION]
     Route: 048
  2. BIRTH CONTROL PILLS [Concomitant]
  3. MEDS FOR IRRITABLE BOWEL SYNDROME [Concomitant]

REACTIONS (2)
  - ASTHENIA [None]
  - TREMOR [None]
